FAERS Safety Report 10099967 (Version 2)
Quarter: 2014Q2

REPORT INFORMATION
  Report Type: Spontaneous
  Country: US (occurrence: US)
  Receive Date: 20140423
  Receipt Date: 20140625
  Transmission Date: 20141212
  Serious: No
  Sender: FDA-Public Use
  Company Number: US-B.I. PHARMACEUTICALS,INC./RIDGEFIELD-2014-BI-17144BP

PATIENT
  Sex: Female

DRUGS (7)
  1. ATROVENT INHALATION SOLUTION [Suspect]
     Indication: PULMONARY SARCOIDOSIS
     Dosage: 136 MCG
     Route: 055
     Dates: start: 2004
  2. SECTRAL [Concomitant]
     Indication: HYPERTENSION
     Dosage: 200 MG
     Route: 048
  3. PANTOPRAZOLE [Concomitant]
     Indication: GASTROOESOPHAGEAL REFLUX DISEASE
     Dosage: 40 MG
     Route: 048
  4. ALPRAZOLAM [Concomitant]
     Indication: ANXIETY
     Dosage: 1 MG
     Route: 048
  5. ULTRAM [Concomitant]
     Indication: PAIN
     Dosage: 50 MG
     Route: 048
  6. ASPIRIN [Concomitant]
     Dosage: 81 MG
     Route: 048
  7. RESTASIS [Concomitant]
     Indication: DRY EYE
     Dosage: STRENGTH: 1 DROP EACH EYE; DAILY DOSE: 2 DROPS EACH EYE
     Route: 061

REACTIONS (4)
  - Wheezing [Not Recovered/Not Resolved]
  - Off label use [Unknown]
  - Drug ineffective [Not Recovered/Not Resolved]
  - Product quality issue [Not Recovered/Not Resolved]
